FAERS Safety Report 6504553-9 (Version None)
Quarter: 2009Q4

REPORT INFORMATION
  Report Type: 
  Country: None (occurrence: None)
  Receive Date: 20091215
  Receipt Date: 20091204
  Transmission Date: 20100525
  Serious: Yes (Hospitalization, Other)
  Sender: FDA-Public Use
  Company Number: 2009AC000313

PATIENT
  Age: 66 Year
  Sex: Female
  Weight: 62.1428 kg

DRUGS (50)
  1. DIGOXIN [Suspect]
     Dosage: 0.25 MG, PO
     Route: 048
     Dates: start: 20070531, end: 20091001
  2. LIPITOR [Concomitant]
  3. COUMADIN [Concomitant]
  4. SYNTHROID [Concomitant]
  5. DILTIAZEM [Concomitant]
  6. METOPROLOL TARTRATE [Concomitant]
  7. HYDROCHLOROTHIAZIDE [Concomitant]
  8. CALCIUM [Concomitant]
  9. OMEPRAZOLE [Concomitant]
  10. NARVASC [Concomitant]
  11. SOTALOL HCL [Concomitant]
  12. PRILOSEC [Concomitant]
  13. MAXZIDE [Concomitant]
  14. PREMARIN [Concomitant]
  15. NORTRIPTYLINE [Concomitant]
  16. CALTRATE [Concomitant]
  17. PREVACID [Concomitant]
  18. REGLAN [Concomitant]
  19. PREMARIN [Concomitant]
  20. NORTRIPTYLINE [Concomitant]
  21. CALTRATE [Concomitant]
  22. PREVACID [Concomitant]
  23. REGLAN [Concomitant]
  24. LOPRESSOR [Concomitant]
  25. CORDARONE [Concomitant]
  26. LEVOTHYROXINE SODIUM [Concomitant]
  27. AMIODARONE HCL [Concomitant]
  28. PACERONE [Concomitant]
  29. TRIAMTERENE [Concomitant]
  30. PRILOSEC [Concomitant]
  31. MIRALAX [Concomitant]
  32. CECLOR [Concomitant]
  33. METHYLPRED [Concomitant]
  34. HYDROCODONE [Concomitant]
  35. ULTRACET [Concomitant]
  36. BEXTRA [Concomitant]
  37. ULTRAVATE [Concomitant]
  38. DOXYCYCL [Concomitant]
  39. ALLEGRA [Concomitant]
  40. GUAIFENESIN [Concomitant]
  41. WARFARIN [Concomitant]
  42. DILTIAZEM [Concomitant]
  43. IBUPROFEN [Concomitant]
  44. PREVACID [Concomitant]
  45. PROPAFENONE HCL [Concomitant]
  46. TRIAMTERNE-HCTZ [Concomitant]
  47. PACERONE [Concomitant]
  48. NORTRIPTYLINE HCL [Concomitant]
  49. NEURONTIN [Concomitant]
  50. LEVOXYL [Concomitant]

REACTIONS (32)
  - ANHEDONIA [None]
  - ANXIETY [None]
  - ATRIAL FIBRILLATION [None]
  - BALANCE DISORDER [None]
  - BRADYCARDIA [None]
  - BURNING SENSATION [None]
  - CHEST DISCOMFORT [None]
  - CHOLELITHIASIS [None]
  - CONDITION AGGRAVATED [None]
  - ECONOMIC PROBLEM [None]
  - FACIAL PAIN [None]
  - GAIT DISTURBANCE [None]
  - HYPERTENSION [None]
  - HYPERTHYROIDISM [None]
  - HYPOACUSIS [None]
  - HYPOTENSION [None]
  - HYPOTHYROIDISM [None]
  - INTERNATIONAL NORMALISED RATIO INCREASED [None]
  - LUMBAR SPINAL STENOSIS [None]
  - MIGRAINE [None]
  - MULTIPLE INJURIES [None]
  - MUSCLE SPASMS [None]
  - MYALGIA [None]
  - NEUROPATHY PERIPHERAL [None]
  - OVERDOSE [None]
  - PAIN [None]
  - PALPITATIONS [None]
  - QUALITY OF LIFE DECREASED [None]
  - SINUSITIS [None]
  - SPINAL OSTEOARTHRITIS [None]
  - THERAPEUTIC AGENT TOXICITY [None]
  - THYROID DISORDER [None]
